FAERS Safety Report 10398034 (Version 2)
Quarter: 2014Q3

REPORT INFORMATION
  Report Type: Report from Study
  Country: PR (occurrence: PR)
  Receive Date: 20140821
  Receipt Date: 20140828
  Transmission Date: 20150326
  Serious: No
  Sender: FDA-Public Use
  Company Number: PR-009507513-1408PRI009769

PATIENT
  Age: 53 Year
  Sex: Male
  Weight: 68.48 kg

DRUGS (7)
  1. MOMETASONE FUROATE (+) FORMOTEROL FUMARATE [Concomitant]
     Active Substance: FORMOTEROL FUMARATE\MOMETASONE FUROATE
     Dosage: UNK
     Dates: start: 20140125
  2. COMPLERA [Concomitant]
     Active Substance: EMTRICITABINE\RILPIVIRINE HYDROCHLORIDE\TENOFOVIR DISOPROXIL FUMARATE
     Dosage: UNK
     Dates: start: 20130625
  3. ZOLPIDEM TARTRATE. [Concomitant]
     Active Substance: ZOLPIDEM TARTRATE
     Dosage: UNK
     Dates: start: 20120620
  4. MK-5172A [Suspect]
     Active Substance: ELBASVIR\GRAZOPREVIR ANHYDROUS
     Indication: CHRONIC HEPATITIS C
     Dosage: 1 TABLET
     Route: 048
     Dates: start: 20140702, end: 20140702
  5. RIBAVIRIN. [Suspect]
     Active Substance: RIBAVIRIN
     Indication: CHRONIC HEPATITIS C
     Dosage: 2 CAPSULES
     Route: 048
     Dates: start: 20140702, end: 20140702
  6. DYMISTA [Concomitant]
     Active Substance: AZELASTINE HYDROCHLORIDE\FLUTICASONE PROPIONATE
     Dosage: UNK
     Dates: start: 20130625
  7. GABAPENTIN. [Concomitant]
     Active Substance: GABAPENTIN
     Dosage: UNK
     Dates: start: 20121120

REACTIONS (1)
  - Arthralgia [Not Recovered/Not Resolved]

NARRATIVE: CASE EVENT DATE: 20140724
